FAERS Safety Report 7449040-9 (Version None)
Quarter: 2011Q2

REPORT INFORMATION
  Report Type: 
  Country: None (occurrence: None)
  Receive Date: 20110429
  Receipt Date: 20090224
  Transmission Date: 20111010
  Serious: Yes (Death)
  Sender: FDA-Public Use
  Company Number: DE-GENENTECH-317622

PATIENT
  Age: 89 Year
  Sex: Female

DRUGS (1)
  1. LUCENTIS [Suspect]
     Indication: MACULAR DEGENERATION
     Route: 031

REACTIONS (5)
  - MALAISE [None]
  - DECREASED APPETITE [None]
  - DEATH [None]
  - NAUSEA [None]
  - CHILLS [None]
